FAERS Safety Report 15786206 (Version 1)
Quarter: 2019Q1

REPORT INFORMATION
  Report Type: Spontaneous
  Country: AU (occurrence: AU)
  Receive Date: 20190103
  Receipt Date: 20190103
  Transmission Date: 20190417
  Serious: Yes (Hospitalization)
  Sender: FDA-Public Use
  Company Number: AU-MYLANLABS-2018M1098099

PATIENT
  Age: 47 Year
  Sex: Male

DRUGS (2)
  1. INSULIN [Concomitant]
     Active Substance: INSULIN NOS
     Indication: INSULIN-REQUIRING TYPE 2 DIABETES MELLITUS
     Route: 065
  2. CLOZAPINE. [Suspect]
     Active Substance: CLOZAPINE
     Indication: SCHIZOPHRENIA
     Route: 065

REACTIONS (7)
  - Myocarditis [Unknown]
  - Systemic inflammatory response syndrome [Unknown]
  - Left ventricular failure [Recovered/Resolved]
  - Pulmonary embolism [Unknown]
  - Hyponatraemia [Unknown]
  - Congestive cardiomyopathy [Unknown]
  - Pleural effusion [Unknown]
